FAERS Safety Report 10761751 (Version 1)
Quarter: 2015Q1

REPORT INFORMATION
  Report Type: Spontaneous
  Country: US (occurrence: None)
  Receive Date: 20150203
  Receipt Date: 20150203
  Transmission Date: 20150721
  Serious: Yes (Hospitalization)
  Sender: FDA-Public Use
  Company Number: None

PATIENT
  Age: 63 Year
  Sex: Male
  Weight: 80.29 kg

DRUGS (1)
  1. ALDESLEUKIN [Suspect]
     Active Substance: ALDESLEUKIN
     Indication: METASTATIC MALIGNANT MELANOMA
     Route: 042
     Dates: start: 20150119, end: 20150121

REACTIONS (12)
  - Acute respiratory failure [None]
  - Hypophagia [None]
  - Capillary leak syndrome [None]
  - Blood potassium increased [None]
  - Respiratory acidosis [None]
  - Hypercapnia [None]
  - Blood pressure systolic increased [None]
  - Unresponsive to stimuli [None]
  - Tachypnoea [None]
  - Pulmonary oedema [None]
  - Cardio-respiratory arrest [None]
  - Depressed level of consciousness [None]

NARRATIVE: CASE EVENT DATE: 20150121
